FAERS Safety Report 5033089-X (Version None)
Quarter: 2006Q2

REPORT INFORMATION
  Report Type: 
  Country: None (occurrence: None)
  Receive Date: 20060620
  Receipt Date: 20060614
  Transmission Date: 20061013
  Serious: Yes (Death)
  Sender: FDA-Public Use
  Company Number: US200606003562

PATIENT
  Age: 33 Year
  Sex: Male

DRUGS (1)
  1. STRATTERA [Suspect]
     Dosage: ORAL
     Route: 048

REACTIONS (2)
  - ANAPHYLACTIC REACTION [None]
  - HYPOTENSION [None]
